FAERS Safety Report 8598059-3 (Version None)
Quarter: 2012Q3

REPORT INFORMATION
  Report Type: 
  Country: None (occurrence: None)
  Receive Date: 20120816
  Receipt Date: 20120806
  Transmission Date: 20120928
  Serious: Yes (Hospitalization)
  Sender: FDA-Public Use
  Company Number: JP-SANOFI-AVENTIS-2012SA012553

PATIENT
  Age: 36 Year
  Sex: Male

DRUGS (3)
  1. SOLOSTAR [Suspect]
     Indication: DEVICE THERAPY
     Dates: start: 20090901
  2. LANTUS SOLOSTAR [Suspect]
     Indication: TYPE 1 DIABETES MELLITUS
     Route: 065
     Dates: start: 20090901
  3. NOVOLIN R [Suspect]
     Route: 065

REACTIONS (9)
  - MEMORY IMPAIRMENT [None]
  - HYPOGLYCAEMIC ENCEPHALOPATHY [None]
  - ALTERED STATE OF CONSCIOUSNESS [None]
  - ENCEPHALITIS [None]
  - CENTRAL NERVOUS SYSTEM LESION [None]
  - DISORIENTATION [None]
  - CONVULSION [None]
  - ANTEROGRADE AMNESIA [None]
  - RESTLESSNESS [None]
